FAERS Safety Report 8515442 (Version 2)
Quarter: 2014Q3

REPORT INFORMATION
  Report Type: Spontaneous
  Country: US (occurrence: US)
  Receive Date: 20120417
  Receipt Date: 20140728
  Transmission Date: 20150326
  Serious: Yes (Hospitalization, Other)
  Sender: FDA-Public Use
  Company Number: US-RANBAXY-2012US-55395

PATIENT
  Sex: Male

DRUGS (1)
  1. ISOTRETINOIN [Suspect]
     Active Substance: ISOTRETINOIN
     Indication: ACNE
     Dosage: UNK, UNK
     Route: 048
     Dates: start: 20080728, end: 20081124

REACTIONS (10)
  - Crohn^s disease [Unknown]
  - Rectal haemorrhage [Unknown]
  - Inflammatory bowel disease [Unknown]
  - Colitis [Unknown]
  - Irritable bowel syndrome [Unknown]
  - Anaemia [Unknown]
  - Colitis ulcerative [Unknown]
  - Diarrhoea [Unknown]
  - Abdominal pain [Unknown]
  - Gastrointestinal oedema [Unknown]
